FAERS Safety Report 10101350 (Version 3)
Quarter: 2015Q1

REPORT INFORMATION
  Report Type: Spontaneous
  Country: US (occurrence: None)
  Receive Date: 20140422
  Receipt Date: 20150202
  Transmission Date: 20150720
  Serious: Yes (Disabling, Other)
  Sender: FDA-Public Use
  Company Number: 2014-US-004346

PATIENT
  Age: 57 Year
  Sex: Male

DRUGS (9)
  1. XYREM [Suspect]
     Active Substance: SODIUM OXYBATE
     Indication: CATAPLEXY
     Route: 048
     Dates: start: 200906, end: 2009
  2. PERCOCET (OXYCODONE HYDROCHLORIDE, PARACETAMOL) [Concomitant]
  3. MIRTAZAPINE. [Concomitant]
     Active Substance: MIRTAZAPINE
  4. DAILY VITAMINS (VITAMINS NOS) [Concomitant]
  5. FENTANYL PATCH (FENTANYL HYDROCHLORIDE) [Concomitant]
  6. XYREM [Suspect]
     Active Substance: SODIUM OXYBATE
     Indication: NARCOLEPSY
     Route: 048
     Dates: start: 200906, end: 2009
  7. PROVIGIL [Concomitant]
     Active Substance: MODAFINIL
  8. DEPAKOTE [Concomitant]
     Active Substance: DIVALPROEX SODIUM
  9. TIZANIDINE (TIZANIDINE) [Concomitant]
     Active Substance: TIZANIDINE

REACTIONS (7)
  - Parkinson^s disease [None]
  - Dementia [None]
  - Brain injury [None]
  - Narcolepsy [None]
  - Emotional distress [None]
  - Cataplexy [None]
  - Condition aggravated [None]

NARRATIVE: CASE EVENT DATE: 2014
